FAERS Safety Report 6240912-X (Version None)
Quarter: 2009Q2

REPORT INFORMATION
  Report Type: 
  Country: None (occurrence: None)
  Receive Date: 20090623
  Receipt Date: 20090611
  Transmission Date: 20091009
  Serious: Yes (Other)
  Sender: FDA-Public Use
  Company Number: US-AVENTIS-200915283US

PATIENT
  Age: 41 Year
  Sex: Female

DRUGS (8)
  1. LANTUS [Suspect]
     Route: 058
  2. APIDRA [Suspect]
     Dosage: DOSE: SLIDING SCALE
     Route: 051
  3. OPTICLIK (INSULIN INJECTION PEN) [Suspect]
  4. LEVOTHROID [Concomitant]
     Indication: THYROID DISORDER
     Dosage: DOSE: UNK
  5. NPH INSULIN [Concomitant]
     Dosage: DOSE: UNK
  6. REGULAR INSULIN [Concomitant]
     Dosage: DOSE: UNK
  7. METFORMIN HCL [Concomitant]
     Dosage: DOSE: UNK
  8. ACTOS [Concomitant]
     Dosage: DOSE: UNK

REACTIONS (5)
  - MOVEMENT DISORDER [None]
  - MUSCULAR WEAKNESS [None]
  - NERVE INJURY [None]
  - PAIN IN EXTREMITY [None]
  - SENSATION OF HEAVINESS [None]
